FAERS Safety Report 24011777 (Version 1)
Quarter: 2024Q2

REPORT INFORMATION
  Report Type: Report from Study
  Country: US (occurrence: None)
  Receive Date: 20240625
  Receipt Date: 20240625
  Transmission Date: 20240716
  Serious: Yes (Hospitalization)
  Sender: FDA-Public Use
  Company Number: 2024A141918

PATIENT
  Sex: Male

DRUGS (5)
  1. TAGRISSO [Suspect]
     Active Substance: OSIMERTINIB
     Indication: HER2 mutant non-small cell lung cancer
     Route: 048
     Dates: start: 20220627
  2. ASPIRIN [Concomitant]
     Active Substance: ASPIRIN
  3. LOPERAMIDE [Concomitant]
     Active Substance: LOPERAMIDE
  4. CHOLESTEROL MED [Concomitant]
  5. UNSPECIFIED INGREDIENT [Concomitant]
     Active Substance: UNSPECIFIED INGREDIENT

REACTIONS (3)
  - Urinary tract inflammation [Unknown]
  - Accidental overdose [Unknown]
  - Treatment noncompliance [Unknown]
